FAERS Safety Report 8791852 (Version 1)
Quarter: 2012Q4

REPORT INFORMATION
  Report Type: 
  Country: US (occurrence: US)
  Receive Date: 20120918
  Receipt Date: 20120918
  Transmission Date: 20130627
  Serious: Yes (Other)
  Sender: FDA-Public Use
  Company Number: US-ELI_LILLY_AND_COMPANY-US201209003086

PATIENT
  Age: 63 Year
  Sex: Female

DRUGS (2)
  1. ADCIRCA [Suspect]
  2. LETAIRIS [Concomitant]
     Dosage: 10 mg, unknown
     Dates: start: 20111007

REACTIONS (2)
  - Dialysis [Unknown]
  - Fluid retention [Not Recovered/Not Resolved]
